FAERS Safety Report 7628930-8 (Version None)
Quarter: 2011Q3

REPORT INFORMATION
  Report Type: 
  Country: None (occurrence: None)
  Receive Date: 20110722
  Receipt Date: 20110629
  Transmission Date: 20111222
  Serious: No
  Sender: FDA-Public Use
  Company Number: US-B.I. PHARMACEUTICALS,INC./RIDGEFIELD-2011-BP-15158BP

PATIENT
  Sex: Female

DRUGS (6)
  1. CRESTOR [Concomitant]
     Dosage: 20 MG
  2. SPIRIVA [Suspect]
     Indication: DYSPNOEA
  3. SPIRIVA [Suspect]
     Indication: CHRONIC OBSTRUCTIVE PULMONARY DISEASE
     Dosage: 18 MCG
     Dates: start: 20070101
  4. PREVACID OTC [Concomitant]
  5. LISINOPRIL [Concomitant]
     Dosage: 20 MG
  6. METOPROLOL TARTRATE [Concomitant]
     Dosage: 50 MG

REACTIONS (1)
  - DRUG INEFFECTIVE [None]
